FAERS Safety Report 6232460-8 (Version None)
Quarter: 2009Q2

REPORT INFORMATION
  Report Type: 
  Country: None (occurrence: None)
  Receive Date: 20090617
  Receipt Date: 20090612
  Transmission Date: 20091009
  Serious: Yes (Death, Hospitalization)
  Sender: FDA-Public Use
  Company Number: US-ROCHE-636718

PATIENT
  Sex: Female
  Weight: 59 kg

DRUGS (2)
  1. CAPECITABINE [Suspect]
     Indication: COLORECTAL CANCER
     Dosage: STRENGTH: 500 MG AND 150 MG, PILLS
     Route: 048
     Dates: start: 20090414, end: 20090605
  2. NAPROXEN [Concomitant]

REACTIONS (3)
  - DEATH [None]
  - DEHYDRATION [None]
  - INTESTINAL OBSTRUCTION [None]
